FAERS Safety Report 17111404 (Version 1)
Quarter: 2019Q4

REPORT INFORMATION
  Report Type: Spontaneous
  Country: PL (occurrence: PL)
  Receive Date: 20191204
  Receipt Date: 20191204
  Transmission Date: 20200122
  Serious: Yes (Hospitalization)
  Sender: FDA-Public Use
  Company Number: PL-JNJFOC-20191137266

PATIENT
  Age: 81 Year
  Sex: Male

DRUGS (3)
  1. FLUTAMIDE. [Concomitant]
     Active Substance: FLUTAMIDE
  2. ZYTIGA [Suspect]
     Active Substance: ABIRATERONE ACETATE
     Indication: PROSTATE CANCER
     Route: 048
     Dates: start: 20181018
  3. DIPHERELINE [Concomitant]
     Active Substance: TRIPTORELIN ACETATE
     Indication: PRODUCT USED FOR UNKNOWN INDICATION
     Route: 065

REACTIONS (4)
  - Dyspnoea [Unknown]
  - Urinary tract infection [Unknown]
  - Drug tolerance decreased [Unknown]
  - Asthenia [Unknown]
